FAERS Safety Report 17196736 (Version 1)
Quarter: 2019Q4

REPORT INFORMATION
  Report Type: Report from Study
  Country: US (occurrence: US)
  Receive Date: 20191224
  Receipt Date: 20191224
  Transmission Date: 20200122
  Serious: Yes (Hospitalization)
  Sender: FDA-Public Use
  Company Number: US-ACTELION-A-US2019-193537

PATIENT
  Sex: Female
  Weight: 120.64 kg

DRUGS (4)
  1. UPTRAVI [Suspect]
     Active Substance: SELEXIPAG
     Indication: PULMONARY ARTERIAL HYPERTENSION
     Dosage: 600 MCG, BID
     Route: 048
     Dates: end: 201912
  2. OPSUMIT [Suspect]
     Active Substance: MACITENTAN
     Indication: PULMONARY ARTERIAL HYPERTENSION
     Dosage: 10 MG, QD
     Route: 048
  3. TREPROSTINIL. [Concomitant]
     Active Substance: TREPROSTINIL
     Dosage: UNK
     Dates: start: 201912
  4. ADCIRCA [Concomitant]
     Active Substance: TADALAFIL

REACTIONS (21)
  - Somnolence [Unknown]
  - Pain in jaw [Unknown]
  - Headache [Unknown]
  - Vomiting [Unknown]
  - Migraine [Unknown]
  - Dyspepsia [Unknown]
  - Diarrhoea [Unknown]
  - Back pain [Unknown]
  - Trismus [Unknown]
  - Pulmonary arterial hypertension [Unknown]
  - Lethargy [Unknown]
  - Arthralgia [Unknown]
  - Myalgia [Unknown]
  - Blood pressure increased [Unknown]
  - Oxygen saturation decreased [Unknown]
  - Fatigue [Unknown]
  - Product dose omission [Unknown]
  - Cough [Unknown]
  - Therapy change [Unknown]
  - Peripheral swelling [Unknown]
  - General physical health deterioration [Unknown]
